FAERS Safety Report 5553463-2 (Version None)
Quarter: 2007Q4

REPORT INFORMATION
  Report Type: 
  Country: None (occurrence: None)
  Receive Date: 20071213
  Receipt Date: 20071204
  Transmission Date: 20080405
  Serious: Yes (Hospitalization)
  Sender: FDA-Public Use
  Company Number: US-JNJFOC-20050403067

PATIENT
  Sex: Male
  Weight: 87.27 kg

DRUGS (10)
  1. TMC114 [Suspect]
     Route: 048
     Dates: start: 20040707, end: 20050410
  2. TMC114 [Suspect]
     Indication: HIV INFECTION
     Route: 048
     Dates: start: 20040707, end: 20050410
  3. RITONAVIR [Suspect]
     Route: 048
  4. RITONAVIR [Suspect]
     Indication: HIV INFECTION
     Route: 048
  5. ENFUVERTIDE [Concomitant]
     Indication: HIV INFECTION
     Route: 058
  6. LAMIVUDINE [Concomitant]
     Route: 048
  7. LAMIVUDINE [Concomitant]
     Indication: HIV INFECTION
     Route: 048
  8. TENOFOVIR DISOPROXIL FUMARATE [Concomitant]
     Indication: HIV INFECTION
     Route: 048
  9. DIDANOSINE [Concomitant]
     Indication: HIV INFECTION
     Route: 048
  10. BACTRIM DS [Concomitant]
     Indication: ANTIFUNGAL PROPHYLAXIS
     Dosage: STARTED PRE TRIAL
     Route: 048

REACTIONS (1)
  - PANCREATITIS [None]
